FAERS Safety Report 23180134 (Version 2)
Quarter: 2023Q4

REPORT INFORMATION
  Report Type: Spontaneous
  Country: US (occurrence: None)
  Receive Date: 20231114
  Receipt Date: 20231123
  Transmission Date: 20240109
  Serious: Yes (Disabling, Other)
  Sender: FDA-Public Use
  Company Number: US-ROCHE-3453759

PATIENT
  Age: 75 Year
  Sex: Female

DRUGS (5)
  1. VABYSMO [Suspect]
     Active Substance: FARICIMAB\FARICIMAB-SVOA
     Indication: Neovascular age-related macular degeneration
     Route: 050
     Dates: start: 20231102
  2. LIVALO [Concomitant]
     Active Substance: PITAVASTATIN CALCIUM
  3. PRALUENT [Concomitant]
     Active Substance: ALIROCUMAB
  4. ASPIRIN [Concomitant]
     Active Substance: ASPIRIN
  5. NEXLETOL [Concomitant]
     Active Substance: BEMPEDOIC ACID

REACTIONS (4)
  - Blindness transient [Unknown]
  - Corneal oedema [Unknown]
  - Anterior chamber cell [Unknown]
  - Blindness [Recovered/Resolved]

NARRATIVE: CASE EVENT DATE: 20231102
